FAERS Safety Report 21498494 (Version 1)
Quarter: 2022Q4

REPORT INFORMATION
  Report Type: Spontaneous
  Country: US (occurrence: None)
  Receive Date: 20221021
  Receipt Date: 20221021
  Transmission Date: 20230112
  Serious: Yes (Hospitalization)
  Sender: FDA-Public Use
  Company Number: None

PATIENT
  Age: 70 Year
  Sex: Female
  Weight: 90.72 kg

DRUGS (9)
  1. VERZENIO [Suspect]
     Active Substance: ABEMACICLIB
     Indication: Breast cancer female
     Dosage: FREQUENCY : DAILY;?
     Route: 048
  2. COLACE [Concomitant]
     Active Substance: DOCUSATE SODIUM
  3. ferrous gluconate 240 mg [Concomitant]
  4. fish oil 1000 mg [Concomitant]
  5. lithium 450 mg [Concomitant]
  6. PREGABALIN [Concomitant]
     Active Substance: PREGABALIN
  7. compazine 10 mg [Concomitant]
  8. torsemide 10 mg [Concomitant]
  9. tylenol 650 mg [Concomitant]

REACTIONS (1)
  - Hospitalisation [None]
